FAERS Safety Report 12268819 (Version 1)
Quarter: 2016Q2

REPORT INFORMATION
  Report Type: Spontaneous
  Country: JP (occurrence: JP)
  Receive Date: 20160414
  Receipt Date: 20160414
  Transmission Date: 20160815
  Serious: Yes (Death, Other)
  Sender: FDA-Public Use
  Company Number: JP-TEVA-651199ISR

PATIENT
  Age: 69 Year
  Sex: Male

DRUGS (4)
  1. PREDNISOLONE. [Suspect]
     Active Substance: PREDNISOLONE
     Indication: T-CELL LYMPHOMA
     Dosage: 40 MG/M2 DAILY; AT A 75% DOSE
     Route: 065
  2. CYCLOPHOSPHAMIDE. [Suspect]
     Active Substance: CYCLOPHOSPHAMIDE
     Indication: T-CELL LYMPHOMA
     Dosage: 650 MG/M2 DAILY; AT A 75% DOSE
     Route: 065
  3. VINCRISTINE [Suspect]
     Active Substance: VINCRISTINE
     Indication: T-CELL LYMPHOMA
     Dosage: 1 MG/M2 DAILY; AT A 75% DOSE
     Route: 065
  4. PIRARUBICIN [Suspect]
     Active Substance: PIRARUBICIN
     Indication: T-CELL LYMPHOMA
     Dosage: 40 MG/M2 DAILY; AT A 75% DOSE
     Route: 065

REACTIONS (5)
  - Respiratory failure [Fatal]
  - Systemic inflammatory response syndrome [Fatal]
  - Candida sepsis [Unknown]
  - Purpura [Unknown]
  - Candida infection [Unknown]
